FAERS Safety Report 21391320 (Version 1)
Quarter: 2022Q3

REPORT INFORMATION
  Report Type: Spontaneous
  Country: US (occurrence: US)
  Receive Date: 20220929
  Receipt Date: 20220929
  Transmission Date: 20221027
  Serious: Yes (Other)
  Sender: FDA-Public Use
  Company Number: US-PFIZER INC-202201188735

PATIENT
  Age: 14 Year
  Sex: Male

DRUGS (2)
  1. BENEFIX [Suspect]
     Active Substance: COAGULATION FACTOR IX RECOMBINANT HUMAN\ISOPROPYL ALCOHOL
     Indication: Haemophilia
     Dosage: INFUSE ~ 6000 UNITS (+/-10%) INTRAVENOUSLY DAILY AS NEEDED FOR BREAKTHROUGH BLEEDS
     Route: 042
  2. ALPROLIX [Concomitant]
     Active Substance: EFTRENONACOG ALFA
     Dosage: UNK

REACTIONS (1)
  - Haemorrhage [Unknown]
